FAERS Safety Report 6913051-X (Version None)
Quarter: 2010Q3

REPORT INFORMATION
  Report Type: 
  Country: None (occurrence: None)
  Receive Date: 20100806
  Receipt Date: 20090619
  Transmission Date: 20110219
  Serious: No
  Sender: FDA-Public Use
  Company Number: US-PFIZER INC-2009230693

PATIENT
  Sex: Female
  Weight: 24.943 kg

DRUGS (1)
  1. VFEND [Suspect]
     Indication: ANTIFUNGAL PROPHYLAXIS
     Dosage: 150 MG, 2X/DAY
     Route: 048
     Dates: start: 20080701, end: 20090101

REACTIONS (1)
  - PHOTOSENSITIVITY REACTION [None]
